FAERS Safety Report 5422536-7 (Version None)
Quarter: 2007Q3

REPORT INFORMATION
  Report Type: 
  Country: None (occurrence: None)
  Receive Date: 20070730
  Receipt Date: 20070613
  Transmission Date: 20080115
  Serious: Yes (Hospitalization, Other)
  Sender: FDA-Public Use
  Company Number: 200711155BWH

PATIENT
  Age: 81 Year
  Sex: Female
  Weight: 60.3284 kg

DRUGS (12)
  1. AVELOX [Suspect]
     Indication: LUNG INFECTION
     Dosage: INTRAVENOUS
     Route: 042
     Dates: start: 20070405
  2. AVELOX [Suspect]
     Indication: PNEUMONIA
     Dosage: INTRAVENOUS
     Route: 042
     Dates: start: 20070405
  3. PREDNISONE TAB [Concomitant]
  4. CELEBREX [Concomitant]
  5. EVISTA [Concomitant]
  6. HYZAAR [Concomitant]
  7. KLOR-CON [Concomitant]
  8. SINVASTATINA MEPHA [Concomitant]
  9. METFORMIN HCL [Concomitant]
  10. METOPROLOL SUCCINATE [Concomitant]
  11. ADVAIR DISKUS 100/50 [Concomitant]
  12. SPIRIVA [Concomitant]

REACTIONS (3)
  - FLANK PAIN [None]
  - HEART RATE INCREASED [None]
  - HYPOTENSION [None]
